FAERS Safety Report 11676924 (Version 1)
Quarter: 2015Q4

REPORT INFORMATION
  Report Type: Spontaneous
  Country: US (occurrence: US)
  Receive Date: 20151028
  Receipt Date: 20151028
  Transmission Date: 20160304
  Serious: Yes (Hospitalization)
  Sender: FDA-Public Use
  Company Number: US-FRESENIUS KABI-FK201505393

PATIENT
  Age: 57 Year
  Sex: Male

DRUGS (2)
  1. CISPLATIN (MANUFACTURER UNKNOWN) [Suspect]
     Active Substance: CISPLATIN
     Indication: MYXOID LIPOSARCOMA
     Route: 033
  2. DOXORUBICIN (MANUFACTURER UNKNOWN) [Suspect]
     Active Substance: DOXORUBICIN
     Indication: MYXOID LIPOSARCOMA
     Route: 033

REACTIONS (2)
  - Wound dehiscence [Recovered/Resolved]
  - Wound evisceration [Recovered/Resolved]
